FAERS Safety Report 16971902 (Version 3)
Quarter: 2020Q4

REPORT INFORMATION
  Report Type: Report from Study
  Country: KR (occurrence: KR)
  Receive Date: 20191029
  Receipt Date: 20201128
  Transmission Date: 20210113
  Serious: Yes (Hospitalization, Other)
  Sender: FDA-Public Use
  Company Number: KR-BRISTOL-MYERS SQUIBB COMPANY-BMS-2019-102267

PATIENT
  Age: 70 Year
  Sex: Male
  Weight: 44.5 kg

DRUGS (1)
  1. NIVOLUMAB [Suspect]
     Active Substance: NIVOLUMAB
     Indication: NON-SMALL CELL LUNG CANCER
     Dosage: 3 MILLIGRAM/KILOGRAM, Q2WK
     Route: 041
     Dates: start: 20180802, end: 20190214

REACTIONS (9)
  - Colitis [Recovered/Resolved]
  - Asthenia [Recovered/Resolved]
  - Haemoglobin decreased [Unknown]
  - Alanine aminotransferase increased [Recovered/Resolved]
  - Pyrexia [Unknown]
  - Aspartate aminotransferase increased [Recovered/Resolved]
  - Abdominal pain [Not Recovered/Not Resolved]
  - Ileus paralytic [Unknown]
  - Melaena [Unknown]

NARRATIVE: CASE EVENT DATE: 20180921
